FAERS Safety Report 5656002-0 (Version None)
Quarter: 2008Q1

REPORT INFORMATION
  Report Type: 
  Country: None (occurrence: None)
  Receive Date: 20080307
  Receipt Date: 20080225
  Transmission Date: 20080703
  Serious: Yes (Other)
  Sender: FDA-Public Use
  Company Number: JP-PFIZER INC-2008018516

PATIENT
  Sex: Female
  Weight: 50 kg

DRUGS (8)
  1. GABAPEN [Suspect]
     Indication: PAIN
  2. DEPAS [Concomitant]
     Indication: INSOMNIA
  3. SERTRALINE [Concomitant]
     Indication: PAIN
  4. SERTRALINE [Concomitant]
     Indication: DEPRESSION
  5. RIVOTRIL [Concomitant]
     Indication: PAIN
  6. ANPLAG [Concomitant]
     Indication: PAIN
  7. GLYSENNID [Concomitant]
     Indication: CONSTIPATION
  8. LENDORMIN [Concomitant]
     Indication: INSOMNIA

REACTIONS (5)
  - ANXIETY [None]
  - DRUG INEFFECTIVE [None]
  - DRUG WITHDRAWAL SYNDROME [None]
  - IRRITABILITY [None]
  - PAIN [None]
